FAERS Safety Report 6521127-4 (Version None)
Quarter: 2009Q4

REPORT INFORMATION
  Report Type: 
  Country: None (occurrence: None)
  Receive Date: 20091222
  Receipt Date: 20091210
  Transmission Date: 20100525
  Serious: Yes (Hospitalization, Other)
  Sender: FDA-Public Use
  Company Number: 2009-193180-NL

PATIENT
  Age: 37 Year
  Sex: Female
  Weight: 94.8925 kg

DRUGS (3)
  1. NUVARING [Suspect]
     Indication: MENORRHAGIA
     Dosage: Q3W;VAG
     Route: 067
     Dates: end: 20090115
  2. MULTI-VITAMINS [Concomitant]
  3. VITAMIN B-12 [Concomitant]

REACTIONS (21)
  - BODY TINEA [None]
  - CHEST PAIN [None]
  - COUGH [None]
  - FEELING ABNORMAL [None]
  - GLYCOSYLATED HAEMOGLOBIN INCREASED [None]
  - HEPATIC STEATOSIS [None]
  - HYPOAESTHESIA [None]
  - INJECTION SITE PAIN [None]
  - LEFT VENTRICULAR HYPERTROPHY [None]
  - MITRAL VALVE INCOMPETENCE [None]
  - MUSCLE SPASMS [None]
  - MUSCULOSKELETAL PAIN [None]
  - OROPHARYNGEAL PAIN [None]
  - PAIN IN EXTREMITY [None]
  - PARAESTHESIA [None]
  - PRURITUS [None]
  - PULMONARY EMBOLISM [None]
  - REFUSAL OF TREATMENT BY PATIENT [None]
  - THROMBOSIS [None]
  - TRICUSPID VALVE INCOMPETENCE [None]
  - TYPE 2 DIABETES MELLITUS [None]
